FAERS Safety Report 24532791 (Version 2)
Quarter: 2024Q4

REPORT INFORMATION
  Report Type: Spontaneous
  Country: US (occurrence: US)
  Receive Date: 20241022
  Receipt Date: 20241028
  Transmission Date: 20250114
  Serious: Yes (Other)
  Sender: PFIZER
  Company Number: US-PFIZER INC-202400280968

PATIENT
  Sex: Male

DRUGS (8)
  1. AZITHROMYCIN [Suspect]
     Active Substance: AZITHROMYCIN
     Indication: Atypical mycobacterial lower respiratory tract infection
     Dosage: UNK (INDUCTION PHASE)
     Dates: start: 201609, end: 201703
  2. AZITHROMYCIN [Suspect]
     Active Substance: AZITHROMYCIN
     Dosage: UNK (MAINTENANCE PHASE)
     Dates: start: 2017, end: 2024
  3. TIGECYCLINE [Suspect]
     Active Substance: TIGECYCLINE
     Indication: Atypical mycobacterial lower respiratory tract infection
     Dosage: UNK (INDUCTION PHASE)
     Dates: start: 201609, end: 201703
  4. IMIPENEM [Suspect]
     Active Substance: IMIPENEM
     Indication: Atypical mycobacterial lower respiratory tract infection
     Dosage: UNK (INDUCTION PHASE)
     Dates: start: 201609, end: 201703
  5. IMIPENEM [Suspect]
     Active Substance: IMIPENEM
     Dosage: UNK (MAINTENANCE PHASE)
     Dates: start: 201801, end: 2018
  6. IMIPENEM [Suspect]
     Active Substance: IMIPENEM
     Dosage: UNK (MAINTENANCE PHASE)
     Dates: start: 2019, end: 202001
  7. CLOFAZIMINE [Suspect]
     Active Substance: CLOFAZIMINE
     Indication: Atypical mycobacterial lower respiratory tract infection
     Dosage: UNK (MAINTENANCE PHASE)
     Dates: start: 201703, end: 2024
  8. AMIKACIN [Suspect]
     Active Substance: AMIKACIN
     Indication: Atypical mycobacterial lower respiratory tract infection
     Dosage: UNK (NEBULIZED; MAINTENANCE PHASE)
     Route: 045
     Dates: start: 201703, end: 201901

REACTIONS (3)
  - Pulmonary function test decreased [Recovered/Resolved]
  - Off label use [Unknown]
  - Drug ineffective for unapproved indication [Unknown]
